FAERS Safety Report 11054875 (Version 2)
Quarter: 2015Q2

REPORT INFORMATION
  Report Type: Spontaneous
  Country: US (occurrence: US)
  Receive Date: 20150422
  Receipt Date: 20150427
  Transmission Date: 20150821
  Serious: Yes (Other)
  Sender: FDA-Public Use
  Company Number: US-JNJFOC-20150411265

PATIENT

DRUGS (2)
  1. TYLENOL UNSPECIFIED USA TYLGENUS [Suspect]
     Active Substance: ACETAMINOPHEN
     Route: 065
  2. TYLENOL UNSPECIFIED USA TYLGENUS [Suspect]
     Active Substance: ACETAMINOPHEN
     Indication: PRODUCT USED FOR UNKNOWN INDICATION
     Route: 065

REACTIONS (3)
  - Overdose [Unknown]
  - Hepatic failure [Unknown]
  - Product quality issue [None]
